FAERS Safety Report 17149771 (Version 1)
Quarter: 2019Q4

REPORT INFORMATION
  Report Type: Spontaneous
  Country: US (occurrence: US)
  Receive Date: 20191213
  Receipt Date: 20191213
  Transmission Date: 20200122
  Serious: Yes (Hospitalization, Other)
  Sender: FDA-Public Use
  Company Number: US-ROCHE-2492647

PATIENT
  Age: 32 Year
  Sex: Female

DRUGS (3)
  1. OCREVUS [Suspect]
     Active Substance: OCRELIZUMAB
     Indication: MULTIPLE SCLEROSIS
     Route: 042
     Dates: start: 201807, end: 201901
  2. RITUXAN [Suspect]
     Active Substance: RITUXIMAB
     Indication: MULTIPLE SCLEROSIS
     Route: 041
     Dates: start: 2016, end: 201801
  3. ACTEMRA [Suspect]
     Active Substance: TOCILIZUMAB
     Indication: NEUROMYELITIS OPTICA SPECTRUM DISORDER
     Dosage: FOLLOWED BY 8 MG/KG ONCE IN 1 MONTH
     Route: 042
     Dates: start: 201904, end: 201904

REACTIONS (5)
  - Optic neuritis [Unknown]
  - Neutropenia [Unknown]
  - Intentional product use issue [Unknown]
  - Off label use [Unknown]
  - Neuromyelitis optica spectrum disorder [Unknown]
